FAERS Safety Report 4609563-4 (Version None)
Quarter: 2005Q1

REPORT INFORMATION
  Report Type: 
  Country: None (occurrence: None)
  Receive Date: 20050314
  Receipt Date: 20050314
  Transmission Date: 20050727
  Serious: Yes (Other)
  Sender: FDA-Public Use
  Company Number: None

PATIENT
  Age: 67 Year
  Sex: Male
  Weight: 97.0698 kg

DRUGS (2)
  1. PROPOXYPHENE HCL [Suspect]
     Indication: OSTEOARTHRITIS
     Dosage: INADEQUATE RELIEF
     Dates: start: 20040401
  2. RELAFEN [Suspect]
     Indication: OSTEOARTHRITIS
     Dosage: 1000 MG QD
     Dates: start: 20040401

REACTIONS (2)
  - ABDOMINAL DISCOMFORT [None]
  - URTICARIA [None]
